FAERS Safety Report 8820032 (Version 2)
Quarter: 2012Q4

REPORT INFORMATION
  Report Type: 
  Country: DE (occurrence: DE)
  Receive Date: 20121001
  Receipt Date: 20121113
  Transmission Date: 20130627
  Serious: Yes (Hospitalization, Other)
  Sender: FDA-Public Use
  Company Number: DE-ELI_LILLY_AND_COMPANY-DE201209005618

PATIENT
  Age: 13 Year
  Sex: Male
  Weight: 70 kg

DRUGS (4)
  1. STRATTERA [Suspect]
     Indication: ATTENTION DEFICIT/HYPERACTIVITY DISORDER
     Dosage: 70 mg, unknown
     Route: 048
     Dates: start: 2007
  2. STRATTERA [Suspect]
     Dosage: 40 mg, unknown
     Route: 048
     Dates: start: 201209
  3. RISPERDAL [Concomitant]
     Dosage: UNK, unknown
     Dates: start: 200808
  4. RISPERDAL [Concomitant]
     Dosage: 0.25 mg, qd
     Dates: end: 201204

REACTIONS (10)
  - Gastritis [Unknown]
  - Diarrhoea haemorrhagic [Unknown]
  - Dystonia [Unknown]
  - Vomiting [Unknown]
  - Chromaturia [Unknown]
  - Extrapyramidal disorder [Unknown]
  - Fluid retention [Unknown]
  - Transaminases increased [Unknown]
  - Weight decreased [Unknown]
  - Fatigue [Unknown]
